APPROVED DRUG PRODUCT: CARISOPRODOL
Active Ingredient: CARISOPRODOL
Strength: 250MG
Dosage Form/Route: TABLET;ORAL
Application: A207237 | Product #001 | TE Code: AB
Applicant: MPP PHARMA LLC
Approved: May 11, 2017 | RLD: No | RS: No | Type: RX